FAERS Safety Report 5384188-4 (Version None)
Quarter: 2007Q3

REPORT INFORMATION
  Report Type: 
  Country: None (occurrence: None)
  Receive Date: 20070711
  Receipt Date: 20070705
  Transmission Date: 20080115
  Serious: Yes (Hospitalization)
  Sender: FDA-Public Use
  Company Number: A0662959A

PATIENT
  Age: 84 Year
  Sex: Female
  Weight: 58.6 kg

DRUGS (7)
  1. COREG [Suspect]
     Route: 048
     Dates: start: 20040601, end: 20060601
  2. SPIRONOLACTONE [Suspect]
     Dosage: 25MG PER DAY
     Route: 048
     Dates: start: 20060801, end: 20061101
  3. METOPROLOL TARTRATE [Suspect]
     Indication: DRUG USE FOR UNKNOWN INDICATION
     Dosage: 50MG PER DAY
     Route: 048
     Dates: start: 20060801, end: 20060901
  4. LASIX [Suspect]
     Indication: DRUG USE FOR UNKNOWN INDICATION
     Dosage: 80MG PER DAY
     Route: 048
     Dates: start: 20010101
  5. MAVIK [Suspect]
     Indication: DRUG USE FOR UNKNOWN INDICATION
     Route: 065
     Dates: start: 20040601, end: 20060601
  6. ENALAPRIL MALEATE [Suspect]
     Indication: DRUG USE FOR UNKNOWN INDICATION
     Dosage: 2.5MG PER DAY
     Route: 048
     Dates: start: 20060601
  7. K-DUR 10 [Suspect]
     Indication: DRUG USE FOR UNKNOWN INDICATION
     Route: 065
     Dates: start: 20010101, end: 20060801

REACTIONS (6)
  - BLOOD POTASSIUM DECREASED [None]
  - BLOOD PRESSURE DECREASED [None]
  - BLOOD PRESSURE SYSTOLIC INCREASED [None]
  - GASTRIC CANCER [None]
  - MINERAL DEFICIENCY [None]
  - OEDEMA PERIPHERAL [None]
